FAERS Safety Report 16127724 (Version 1)
Quarter: 2019Q1

REPORT INFORMATION
  Report Type: Spontaneous
  Country: US (occurrence: US)
  Receive Date: 20190328
  Receipt Date: 20190328
  Transmission Date: 20190418
  Serious: Yes (Congenital Anomaly, Other)
  Sender: FDA-Public Use
  Company Number: US-TEVA-2019-US-1030033

PATIENT
  Age: 10 Year
  Sex: Female

DRUGS (5)
  1. LOMUSTINE. [Suspect]
     Active Substance: LOMUSTINE
     Indication: MEDULLOBLASTOMA
     Dosage: 480 MG (450 MG/M2)
     Route: 065
  2. CARBOPLATIN. [Suspect]
     Active Substance: CARBOPLATIN
     Indication: MEDULLOBLASTOMA
     Route: 065
  3. CYCLOPHOSPHAMIDE. [Suspect]
     Active Substance: CYCLOPHOSPHAMIDE
     Indication: MEDULLOBLASTOMA
     Dosage: 6280 MG (6000 MG/M2)
     Route: 065
  4. VINCRISTINE [Suspect]
     Active Substance: VINCRISTINE
     Indication: MEDULLOBLASTOMA
     Dosage: 35.2 MG (33 MG/M2)
     Route: 065
  5. CISPLATIN. [Suspect]
     Active Substance: CISPLATIN
     Indication: MEDULLOBLASTOMA
     Dosage: 80 MG (75 MG/M2)
     Route: 065

REACTIONS (4)
  - Chromosome analysis abnormal [Unknown]
  - Acute myeloid leukaemia [Unknown]
  - 5q minus syndrome [Unknown]
  - Cytogenetic abnormality [Unknown]
